FAERS Safety Report 23586290 (Version 1)
Quarter: 2024Q1

REPORT INFORMATION
  Report Type: Spontaneous
  Country: US (occurrence: US)
  Receive Date: 20240301
  Receipt Date: 20240301
  Transmission Date: 20240410
  Serious: Yes (Other)
  Sender: FDA-Public Use
  Company Number: US-SA-SAC20240226000723

PATIENT
  Age: 20 Year

DRUGS (3)
  1. CEREZYME [Suspect]
     Active Substance: IMIGLUCERASE
     Indication: Gaucher^s disease type I
     Dosage: 5200 U (46 U/KG)
     Route: 065
  2. CEREZYME [Suspect]
     Active Substance: IMIGLUCERASE
     Dosage: 6400 U
     Route: 065
  3. CEREZYME [Suspect]
     Active Substance: IMIGLUCERASE
     Dosage: 6800 U (NOW AT 60 U/KG)
     Route: 065

REACTIONS (6)
  - Lymphoma [Unknown]
  - Mesenteric lymphadenitis [Unknown]
  - Gaucher^s disease [Unknown]
  - Glucosylsphingosine increased [Unknown]
  - Chitotriosidase increased [Unknown]
  - Serum ferritin increased [Unknown]
